FAERS Safety Report 20847977 (Version 4)
Quarter: 2023Q1

REPORT INFORMATION
  Report Type: Spontaneous
  Country: CA (occurrence: CA)
  Receive Date: 20220519
  Receipt Date: 20230218
  Transmission Date: 20230418
  Serious: Yes (Life-Threatening, Hospitalization, Other)
  Sender: FDA-Public Use
  Company Number: CA-Accord-263402

PATIENT
  Age: 70 Year
  Sex: Female

DRUGS (9)
  1. CISPLATIN [Interacting]
     Active Substance: CISPLATIN
     Indication: Small cell lung cancer
     Dosage: INJECTION, BP SINGLE DOSE VIALS. DOSAGE FORM: SOLUTION INTRAVENOUS
  2. PACLITAXEL [Interacting]
     Active Substance: PACLITAXEL
     Indication: Small cell lung cancer
     Dosage: DOSAGE FORM: LIQUID INTRAVENOUS
  3. DOCETAXEL [Suspect]
     Active Substance: DOCETAXEL
     Indication: Small cell lung cancer
  4. NABILONE [Interacting]
     Active Substance: NABILONE
     Indication: Neuralgia
     Dosage: TITRATED UP TO 1 MG ORALLY, 2 MG ORALLY ONCE A DAY
     Route: 048
  5. BUPROPION [Concomitant]
     Active Substance: BUPROPION
  6. BISOPROLOL [Concomitant]
     Active Substance: BISOPROLOL
  7. HALOPERIDOL [Concomitant]
     Active Substance: HALOPERIDOL
     Indication: Dementia
  8. LORAZEPAM [Concomitant]
     Active Substance: LORAZEPAM
  9. DOMPERIDONE [Concomitant]
     Active Substance: DOMPERIDONE

REACTIONS (13)
  - Decreased appetite [Unknown]
  - Diarrhoea [Unknown]
  - Neuralgia [Unknown]
  - Nausea [Recovered/Resolved]
  - Off label use [Unknown]
  - Condition aggravated [Recovered/Resolved]
  - Oral pain [Unknown]
  - Alopecia [Unknown]
  - Vomiting [Recovered/Resolved]
  - Drug interaction [Unknown]
  - Cognitive disorder [Unknown]
  - Renal function test abnormal [Recovered/Resolved]
  - Cannabinoid hyperemesis syndrome [Recovered/Resolved]
